FAERS Safety Report 24531746 (Version 1)
Quarter: 2024Q4

REPORT INFORMATION
  Report Type: Spontaneous
  Country: CN (occurrence: CN)
  Receive Date: 20241022
  Receipt Date: 20241022
  Transmission Date: 20250114
  Serious: Yes (Hospitalization, Other)
  Sender: NOVO NORDISK
  Company Number: None

PATIENT
  Age: 62 Year
  Sex: Male
  Weight: 65.9 kg

DRUGS (3)
  1. VICTOZA [Suspect]
     Active Substance: LIRAGLUTIDE
     Indication: Type 2 diabetes mellitus
     Dosage: 1.2 MG, QD
     Route: 058
  2. VICTOZA [Suspect]
     Active Substance: LIRAGLUTIDE
     Dosage: 1.8 MG, QD
     Route: 058
     Dates: end: 20241007
  3. ASPIRIN [Suspect]
     Active Substance: ASPIRIN
     Indication: Type 2 diabetes mellitus
     Dosage: 100 MG, QD
     Route: 048
     Dates: start: 20241003, end: 20241007

REACTIONS (9)
  - Dyspepsia [Recovering/Resolving]
  - Hypoxia [Unknown]
  - Aspiration [Unknown]
  - Pneumonia aspiration [Unknown]
  - Regurgitation [Unknown]
  - Impaired gastric emptying [Unknown]
  - Oxygen saturation decreased [Unknown]
  - Blood pressure decreased [Unknown]
  - Product use issue [Unknown]

NARRATIVE: CASE EVENT DATE: 20241008
